FAERS Safety Report 9322732 (Version 4)
Quarter: 2014Q1

REPORT INFORMATION
  Report Type: Spontaneous
  Country: US (occurrence: US)
  Receive Date: 20130601
  Receipt Date: 20140107
  Transmission Date: 20141002
  Serious: Yes (Hospitalization)
  Sender: FDA-Public Use
  Company Number: US-ASTRAZENECA-2013SE38634

PATIENT
  Age: 47 Year
  Sex: Male
  Weight: 128.8 kg

DRUGS (10)
  1. NEXIUM [Suspect]
     Indication: GASTROOESOPHAGEAL REFLUX DISEASE
     Route: 048
     Dates: start: 2006
  2. NEXIUM [Suspect]
     Indication: GASTROOESOPHAGEAL REFLUX DISEASE
     Route: 048
     Dates: start: 20111012
  3. ROLAIDS [Concomitant]
  4. FLUTICASONE [Concomitant]
     Indication: HYPERSENSITIVITY
     Dosage: 50 MCG/ACT
     Route: 045
  5. TRAMADOL [Concomitant]
     Indication: PAIN
  6. GABAPENTIN [Concomitant]
     Indication: PAIN IN EXTREMITY
  7. MULTIVITAMIN [Concomitant]
     Dosage: ONCE A DAY
  8. GLUCOSAMINE CHONDROITIN [Concomitant]
     Indication: ARTHRALGIA
     Dosage: TWO PILLS A DAY
  9. ACETAMINOPHENES [Concomitant]
     Dosage: AS NEEDED
  10. ASPIRIN [Concomitant]

REACTIONS (11)
  - Pain in extremity [Unknown]
  - Arthralgia [Unknown]
  - Osteoporosis [Unknown]
  - Fall [Unknown]
  - Bone disorder [Unknown]
  - Upper limb fracture [Unknown]
  - Lower limb fracture [Unknown]
  - Osteoarthritis [Unknown]
  - Angina pectoris [Unknown]
  - Hand fracture [Unknown]
  - Depression [Unknown]
